FAERS Safety Report 21725177 (Version 2)
Quarter: 2022Q4

REPORT INFORMATION
  Report Type: Other
  Country: AU (occurrence: AU)
  Receive Date: 20221214
  Receipt Date: 20221227
  Transmission Date: 20230113
  Serious: Yes (Death, Hospitalization)
  Sender: FDA-Public Use
  Company Number: AU-TOLMAR, INC.-22AU037784

PATIENT
  Sex: Male

DRUGS (1)
  1. ELIGARD [Suspect]
     Active Substance: LEUPROLIDE ACETATE
     Indication: Prostate cancer
     Dosage: 22.5 MILLIGRAM, Q 3 MONTH

REACTIONS (3)
  - Death [Fatal]
  - Pneumonia [Unknown]
  - Fall [Unknown]
